FAERS Safety Report 4787153-0 (Version None)
Quarter: 2005Q4

REPORT INFORMATION
  Report Type: 
  Country: None (occurrence: None)
  Receive Date: 20051004
  Receipt Date: 20050830
  Transmission Date: 20060501
  Serious: Yes (Other)
  Sender: FDA-Public Use
  Company Number: GB-ROCHE-415806

PATIENT
  Age: 59 Year

DRUGS (7)
  1. SAQUINAVIR FORMULATION UNKNOWN [Suspect]
     Indication: DRUG USE FOR UNKNOWN INDICATION
     Route: 065
  2. KALETRA [Suspect]
     Indication: DRUG USE FOR UNKNOWN INDICATION
     Route: 065
  3. GEMFIBROZIL [Concomitant]
     Route: 048
     Dates: start: 20041015
  4. GLIBENCLAMIDE [Concomitant]
     Route: 048
     Dates: start: 20030615
  5. METFORMIN [Concomitant]
     Route: 048
     Dates: start: 20030615
  6. PREDNISOLONE [Concomitant]
     Route: 048
     Dates: start: 20050510, end: 20050615
  7. ALBUTEROL SULFATE HFA [Concomitant]
     Route: 065
     Dates: start: 20030615

REACTIONS (4)
  - CARDIAC FAILURE CONGESTIVE [None]
  - DYSPNOEA [None]
  - HYPOGLYCAEMIA [None]
  - SYNCOPE [None]
